FAERS Safety Report 22145802 (Version 1)
Quarter: 2023Q1

REPORT INFORMATION
  Report Type: Spontaneous
  Country: US (occurrence: None)
  Receive Date: 20230327
  Receipt Date: 20230327
  Transmission Date: 20230418
  Serious: No
  Sender: FDA-Public Use
  Company Number: None

PATIENT
  Age: 53 Year
  Sex: Female
  Weight: 101.7 kg

DRUGS (8)
  1. MOUNJARO [Suspect]
     Active Substance: TIRZEPATIDE
     Indication: Diabetes mellitus
     Dosage: OTHER QUANTITY : 1 INJECTION(S);?OTHER FREQUENCY : PER WEEK;?OTHER ROUTE : INJECTION INTO BELLY AREA
     Route: 050
     Dates: start: 20230102, end: 20230313
  2. Candesartan-8mg tablet-1/day [Concomitant]
  3. Atorvastatin Calcium-20mg tablet-1/day [Concomitant]
  4. Metformin HCL-extended release-500 mg tablet-2/day [Concomitant]
  5. Basaglar Kwikpen-insulin-110 units/day [Concomitant]
  6. Vitamin D3-50mcg/2000 IU [Concomitant]
  7. softgel-1/day [Concomitant]
  8. Aspirin-81 mg tablet-1/day [Concomitant]

REACTIONS (4)
  - Diarrhoea [None]
  - Malaise [None]
  - Eructation [None]
  - Abdominal discomfort [None]

NARRATIVE: CASE EVENT DATE: 20230203
